FAERS Safety Report 9092998 (Version 1)
Quarter: 2013Q1

REPORT INFORMATION
  Report Type: Spontaneous
  Country: US (occurrence: US)
  Receive Date: 20130201
  Receipt Date: 20130201
  Transmission Date: 20140127
  Serious: Yes (Death)
  Sender: FDA-Public Use
  Company Number: US-PFIZER INC-2013040804

PATIENT
  Age: 57 Year
  Sex: Male

DRUGS (1)
  1. RAPAMUNE [Suspect]
     Indication: MYELOFIBROSIS
     Dosage: 2.5 MG, 1X/DAY

REACTIONS (3)
  - Neoplasm malignant [Fatal]
  - Disease progression [Fatal]
  - Off label use [Unknown]
